FAERS Safety Report 8373788-5 (Version None)
Quarter: 2012Q2

REPORT INFORMATION
  Report Type: 
  Country: None (occurrence: None)
  Receive Date: 20120521
  Receipt Date: 20120507
  Transmission Date: 20120825
  Serious: Yes (Life-Threatening, Hospitalization)
  Sender: FDA-Public Use
  Company Number: CH-ROCHE-1047002

PATIENT
  Age: 45 Year
  Sex: Female

DRUGS (6)
  1. XELODA [Suspect]
     Indication: BREAST CANCER
     Dosage: DATE OF LAST DOSE PRIOR TO SAE: 05/MAR/2012
     Route: 048
     Dates: start: 20111117
  2. MORPHINE [Concomitant]
     Route: 048
  3. FENTANYL-100 [Concomitant]
  4. AVASTIN [Suspect]
     Indication: BREAST CANCER
     Dosage: DATE OF LAST DOSE PRIOR TO SAE: 23/FEB/2012
     Route: 042
     Dates: start: 20111117
  5. CYCLOPHOSPHAMIDE [Suspect]
     Indication: BREAST CANCER
     Dosage: DATE OF LAST DOSE PRIOR TO SAE: 05/MAR/2012
     Route: 048
     Dates: start: 20111117
  6. HALOPERIDOL [Concomitant]
     Route: 048

REACTIONS (4)
  - VOMITING [None]
  - ABDOMINAL PAIN LOWER [None]
  - ABDOMINAL PAIN UPPER [None]
  - LARGE INTESTINE PERFORATION [None]
